FAERS Safety Report 9934638 (Version 1)
Quarter: 2014Q1

REPORT INFORMATION
  Report Type: Report from Study
  Country: MX (occurrence: MX)
  Receive Date: 20140228
  Receipt Date: 20140228
  Transmission Date: 20141002
  Serious: Yes (Other)
  Sender: FDA-Public Use
  Company Number: PHHY2014MX022766

PATIENT
  Age: 75 Year
  Sex: Female

DRUGS (7)
  1. ONBREZ [Suspect]
     Indication: BRONCHIAL DISORDER
     Dosage: 1 DF, DAILY
     Route: 055
     Dates: start: 201312
  2. ONBREZ [Suspect]
     Indication: OFF LABEL USE
  3. SELOKEN ZOK [Concomitant]
     Indication: HYPERTENSION
     Dosage: 1 DF, DAILY
  4. ATACAND PLUS [Concomitant]
     Indication: HYPERTENSION
     Dosage: 1 DF, DAILY
  5. ATACAND [Concomitant]
     Indication: HYPERTENSION
     Dosage: 1 DF, DAILY
  6. EVIPRESS [Concomitant]
     Dosage: 1 DF, DAILY
  7. ALKA SELTZER [Concomitant]
     Dosage: UNK

REACTIONS (9)
  - Urinary tract infection [Not Recovered/Not Resolved]
  - Thyroid disorder [Not Recovered/Not Resolved]
  - Cardiomegaly [Not Recovered/Not Resolved]
  - Pneumonia [Not Recovered/Not Resolved]
  - Dyspnoea [Not Recovered/Not Resolved]
  - Arthropathy [Not Recovered/Not Resolved]
  - Sleep disorder [Not Recovered/Not Resolved]
  - Gastrointestinal disorder [Not Recovered/Not Resolved]
  - Blood pressure increased [Not Recovered/Not Resolved]
